FAERS Safety Report 10744524 (Version 1)
Quarter: 2015Q1

REPORT INFORMATION
  Report Type: Spontaneous
  Country: US (occurrence: None)
  Receive Date: 20150126
  Receipt Date: 20150126
  Transmission Date: 20150721
  Serious: Yes (Hospitalization)
  Sender: FDA-Public Use
  Company Number: None

PATIENT
  Age: 37 Year
  Sex: Female
  Weight: 65.77 kg

DRUGS (1)
  1. INTAL [Suspect]
     Active Substance: CROMOLYN SODIUM
     Indication: ASTHMA
     Dosage: 1 CAPSULE, FOUR TIMES DAILY INHALATION
     Route: 055
     Dates: start: 19720501, end: 19891212

REACTIONS (9)
  - Pleurisy [None]
  - Lupus-like syndrome [None]
  - Pneumonia [None]
  - Lethargy [None]
  - Impaired work ability [None]
  - White blood cell count abnormal [None]
  - Empyema [None]
  - Asthma [None]
  - Photosensitivity reaction [None]

NARRATIVE: CASE EVENT DATE: 19860906
